FAERS Safety Report 8762666 (Version 1)
Quarter: 2012Q4

REPORT INFORMATION
  Report Type: 
  Country: CN (occurrence: CN)
  Receive Date: 20120830
  Receipt Date: 20120830
  Transmission Date: 20130627
  Serious: Yes (Other)
  Sender: FDA-Public Use
  Company Number: CN-ROCHE-CID000000002130288

PATIENT
  Age: 65 Year
  Sex: Female
  Weight: 60 kg

DRUGS (1)
  1. ROCEPHIN [Suspect]
     Indication: LUNG INFECTION
     Route: 041
     Dates: start: 20090515, end: 20090515

REACTIONS (5)
  - Tic [Recovered/Resolved]
  - Palpitations [Recovering/Resolving]
  - Nausea [Recovering/Resolving]
  - Vomiting [Recovering/Resolving]
  - Dysphoria [Recovering/Resolving]
